FAERS Safety Report 16576945 (Version 1)
Quarter: 2019Q3

REPORT INFORMATION
  Report Type: Spontaneous
  Country: JP (occurrence: JP)
  Receive Date: 20190716
  Receipt Date: 20190716
  Transmission Date: 20191004
  Serious: Yes (Other)
  Sender: FDA-Public Use
  Company Number: JP-SA-2019SA190845

PATIENT
  Age: 77 Year
  Sex: Male

DRUGS (1)
  1. AFLIBERCEPT [Suspect]
     Active Substance: AFLIBERCEPT
     Indication: AGE-RELATED MACULAR DEGENERATION
     Dosage: UNK
     Route: 031

REACTIONS (8)
  - Drug hypersensitivity [Unknown]
  - Visual impairment [Recovering/Resolving]
  - Periphlebitis [Recovering/Resolving]
  - Retinal haemorrhage [Recovering/Resolving]
  - Anterior chamber fibrin [Recovering/Resolving]
  - Keratic precipitates [Recovering/Resolving]
  - Inflammation [Recovering/Resolving]
  - Endophthalmitis [Recovering/Resolving]
